FAERS Safety Report 6524648-3 (Version None)
Quarter: 2010Q1

REPORT INFORMATION
  Report Type: 
  Country: None (occurrence: None)
  Receive Date: 20100104
  Receipt Date: 20091230
  Transmission Date: 20100710
  Serious: Yes (Death, Hospitalization, Other)
  Sender: FDA-Public Use
  Company Number: PHHY2009FR59429

PATIENT
  Age: 65 Year
  Sex: Male

DRUGS (7)
  1. VOLTAREN [Suspect]
     Indication: BACK PAIN
     Dosage: UNK
     Dates: start: 20091130, end: 20091206
  2. PREVISCAN [Interacting]
     Indication: ARRHYTHMIA
     Dosage: 20 MG, UNK
     Dates: end: 20091206
  3. PROPOFAN [Concomitant]
     Indication: BACK PAIN
     Dosage: UNK
     Dates: start: 20091130, end: 20091206
  4. MYOLASTAN [Concomitant]
     Indication: BACK PAIN
     Dosage: UNK
     Dates: start: 20091130, end: 20091206
  5. MOPRAL [Concomitant]
     Indication: BACK PAIN
     Dosage: UNK
     Dates: start: 20091130, end: 20091206
  6. TRIATEC [Concomitant]
     Dosage: 5 MG, UNK
  7. CORDARONE [Concomitant]

REACTIONS (6)
  - ANURIA [None]
  - ASTHENIA [None]
  - CEREBRAL HAEMORRHAGE [None]
  - DRUG INTERACTION [None]
  - GINGIVAL BLEEDING [None]
  - HAEMATURIA [None]
